FAERS Safety Report 4971403-1 (Version None)
Quarter: 2006Q2

REPORT INFORMATION
  Report Type: 
  Country: None (occurrence: None)
  Receive Date: 20060406
  Receipt Date: 20060323
  Transmission Date: 20061013
  Serious: Yes (Death, Life-Threatening, Hospitalization)
  Sender: FDA-Public Use
  Company Number: 2004-00648

PATIENT
  Age: 49 Year
  Sex: Female
  Weight: 47 kg

DRUGS (5)
  1. VELCADE [Suspect]
     Indication: MULTIPLE MYELOMA
     Dosage: IV BOLUS
     Route: 040
     Dates: start: 20040906, end: 20041012
  2. RABEPRAZOLE SODIUM [Concomitant]
  3. DURAGESIC-100 [Concomitant]
  4. SODIUM BICARBONATE IN PLASTIC CONTAINER [Concomitant]
  5. ZOMETA [Concomitant]

REACTIONS (9)
  - ANOREXIA [None]
  - DISEASE PROGRESSION [None]
  - DYSPNOEA [None]
  - ECCHYMOSIS [None]
  - GINGIVAL BLEEDING [None]
  - HAEMATOMA [None]
  - MELAENA [None]
  - PHARYNGEAL HAEMORRHAGE [None]
  - WEIGHT DECREASED [None]
